FAERS Safety Report 18203239 (Version 1)
Quarter: 2020Q3

REPORT INFORMATION
  Report Type: Spontaneous
  Country: ZA (occurrence: ZA)
  Receive Date: 20200827
  Receipt Date: 20200827
  Transmission Date: 20201103
  Serious: Yes (Hospitalization)
  Sender: FDA-Public Use
  Company Number: ZA-NOVOPROD-748415

PATIENT
  Age: 68 Year
  Sex: Female

DRUGS (3)
  1. LEVEMIR [Suspect]
     Active Substance: INSULIN DETEMIR
     Indication: TYPE 2 DIABETES MELLITUS
     Dosage: 48 IU, QD
     Route: 065
  2. NOVORAPID [Suspect]
     Active Substance: INSULIN ASPART
     Indication: TYPE 2 DIABETES MELLITUS
     Dosage: 82 IU, QD (BREAKFAST DOSE 26U, LUNCH DOSE 28U  AND SUPPER DOSE 28U)
     Route: 065
  3. FORXIGA [Concomitant]
     Active Substance: DAPAGLIFLOZIN

REACTIONS (3)
  - Paraesthesia [Unknown]
  - Myocardial infarction [Unknown]
  - Diabetes mellitus inadequate control [Unknown]
